FAERS Safety Report 4945830-2 (Version None)
Quarter: 2006Q1

REPORT INFORMATION
  Report Type: 
  Country: None (occurrence: None)
  Receive Date: 20060117
  Receipt Date: 20050908
  Transmission Date: 20060701
  Serious: Yes (Other)
  Sender: FDA-Public Use
  Company Number: A03200502893

PATIENT
  Age: 71 Year
  Sex: Female

DRUGS (8)
  1. PLAVIX [Suspect]
     Indication: AORTIC ANEURYSM
     Dosage: ORAL
     Route: 048
     Dates: start: 20040401
  2. PLAVIX [Suspect]
     Indication: ARTERIAL STENT INSERTION
     Dosage: ORAL
     Route: 048
     Dates: start: 20040401
  3. ACETYLSALICYLIC ACID SRT [Concomitant]
  4. ATENOLOL [Concomitant]
  5. HYDROCHLOROTHIAZIDE [Concomitant]
  6. TELMISARTAN [Concomitant]
  7. ATORVASTATIN CALCIUM [Concomitant]
  8. CLONIDINE [Concomitant]

REACTIONS (4)
  - CONTUSION [None]
  - GASTRITIS [None]
  - MELAENA [None]
  - RASH ERYTHEMATOUS [None]
